FAERS Safety Report 24087425 (Version 2)
Quarter: 2024Q3

REPORT INFORMATION
  Report Type: Report from Study
  Country: AU (occurrence: AU)
  Receive Date: 20240714
  Receipt Date: 20240830
  Transmission Date: 20241017
  Serious: Yes (Hospitalization, Other)
  Sender: BAXTER
  Company Number: AU-BAXTER-2024BAX021342

PATIENT
  Age: 22 Year
  Sex: Female

DRUGS (23)
  1. CYCLOPHOSPHAMIDE [Suspect]
     Active Substance: CYCLOPHOSPHAMIDE
     Indication: Hodgkin^s disease
     Dosage: 1250 MG/M2, ONGOING
     Route: 065
     Dates: start: 20180815, end: 20180815
  2. CYCLOPHOSPHAMIDE [Suspect]
     Active Substance: CYCLOPHOSPHAMIDE
     Dosage: UNK, CYCLE 2, AS A PART OF BEACOPP, PRIOR TO ONSET OF GRADE 3 COMMUNITY ACQUIRED PNEUMONIA
     Route: 065
     Dates: start: 20180905, end: 20180905
  3. DOXORUBICIN [Suspect]
     Active Substance: DOXORUBICIN
     Indication: Hodgkin^s disease
     Dosage: 35 MG/M2, CYCLIC, LAST DOSE PRIOR TO EVENT GRADE 3 BILATERAL LEG PAIN, CYCLE 1, AS A PART OF BEACOPP
     Route: 065
     Dates: start: 20180815, end: 20180815
  4. DOXORUBICIN [Suspect]
     Active Substance: DOXORUBICIN
     Dosage: UNK, CYCLE 2, AS A PART OF BEACOPP, PRIOR TO ONSET OF GRADE 3 COMMUNITY ACQUIRED PNEUMONIA, LAST DOS
     Route: 065
     Dates: start: 20180905, end: 20180905
  5. VINCRISTINE SULFATE [Suspect]
     Active Substance: VINCRISTINE SULFATE
     Indication: Hodgkin^s disease
     Dosage: 164 MG/M2, LAST DOSE PRIOR TO EVENT GRADE 3 BILATERAL LEG PAIN, AS A PART OF BEACOPP, ONGOING
     Route: 065
     Dates: start: 20180822, end: 20180822
  6. VINCRISTINE SULFATE [Suspect]
     Active Substance: VINCRISTINE SULFATE
     Dosage: UNK, CYCLE 2, AS A PART OF BEACOPP, PRIOR TO ONSET OF THE EVENT OF GRADE 3 COMMUNITY ACQUIRED PNEUMO
     Route: 065
     Dates: start: 20180912
  7. BLEOMYCIN SULFATE [Suspect]
     Active Substance: BLEOMYCIN SULFATE
     Indication: Hodgkin^s disease
     Dosage: 10 MG/M2, CYCLIC, LAST DOSE PRIOR TO EVENT GRADE 3 BILATERAL LEG PAIN, AS A PART OF BEACOPP, ONGOING
     Route: 065
     Dates: start: 20180822, end: 20180822
  8. BLEOMYCIN SULFATE [Suspect]
     Active Substance: BLEOMYCIN SULFATE
     Dosage: UNK, CYCLE 2, AS A PART OF BEACOPP, PRIOR TO ONSET OF THE EVENT OF GRADE 3 COMMUNITY ACQUIRED PNEUMO
     Route: 065
     Dates: start: 20180912
  9. ETOPOSIDE [Suspect]
     Active Substance: ETOPOSIDE
     Indication: Hodgkin^s disease
     Dosage: 200 MG/M2, AS A PART OF BEACOPP, ONGOING
     Route: 065
     Dates: start: 20180815
  10. ETOPOSIDE [Suspect]
     Active Substance: ETOPOSIDE
     Dosage: UNK, CYCLE 1, AS A PART OF BEACOPP, LAST DOSE PRIOR TO EVENT GRADE 3 BILATERAL LEG PAIN
     Route: 065
     Dates: start: 20180817, end: 20180817
  11. ETOPOSIDE [Suspect]
     Active Substance: ETOPOSIDE
     Dosage: UNK, CYCLE 2, AS A PART OF BEACOPP, PRIOR TO ONSET OF GRADE 3 COMMUNITY ACQUIRED PNEUMONIA
     Route: 065
     Dates: start: 20180905, end: 20180907
  12. PREDNISONE [Suspect]
     Active Substance: PREDNISONE
     Indication: Hodgkin^s disease
     Dosage: 40 MG/M2, AS A PART OF BEACOPP, ONGOING
     Route: 065
     Dates: start: 20180815
  13. PREDNISONE [Suspect]
     Active Substance: PREDNISONE
     Dosage: UNK, CYCLE 1, LAST DOSE PRIOR TO EVENT GRADE 3 BILATERAL LEG PAIN, AS A PART OF BEACOPP
     Route: 065
     Dates: start: 20180828, end: 20180828
  14. PREDNISONE [Suspect]
     Active Substance: PREDNISONE
     Dosage: UNK, CYCLE 2, AS A PART OF BEACOPP, PRIOR TO ONSET OF GRADE 3 COMMUNITY ACQUIRED PNEUMONIA, LAST DOS
     Route: 065
     Dates: start: 20180905, end: 20180918
  15. PROCARBAZINE [Suspect]
     Active Substance: PROCARBAZINE
     Indication: Hodgkin^s disease
     Dosage: 100 MILLIGRAM/SQ.METER, AS A PART OF BEACOPP, ONGOING
     Route: 065
     Dates: start: 20180815
  16. PROCARBAZINE [Suspect]
     Active Substance: PROCARBAZINE
     Dosage: UNK, CYCLE 1, LAST DOSE PRIOR TO EVENT GRADE 3 BILATERAL LEG PAIN, AS A PART OF BEACOPP
     Route: 065
     Dates: start: 20180821, end: 20180821
  17. PROCARBAZINE [Suspect]
     Active Substance: PROCARBAZINE
     Dosage: UNK, CYCLE 2, AS A PART OF BEACOPP, PRIOR TO ONSET OF GRADE 3 COMMUNITY ACQUIRED PNEUMONIA, LAST DOS
     Route: 065
     Dates: start: 20180905, end: 20180911
  18. GRANULOCYTE COLONY-STIMULATING FACTOR NOS [Suspect]
     Active Substance: GRANULOCYTE COLONY-STIMULATING FACTOR NOS
     Indication: Product used for unknown indication
     Dosage: UNK
     Route: 065
  19. OXYCODONE HYDROCHLORIDE [Concomitant]
     Active Substance: OXYCODONE HYDROCHLORIDE
     Dosage: UNK
     Route: 065
     Dates: start: 20180830
  20. IBUPROFEN [Concomitant]
     Active Substance: IBUPROFEN
     Dosage: UNK
     Route: 065
     Dates: start: 20180830
  21. PANADOL [Concomitant]
     Active Substance: ACETAMINOPHEN
     Dosage: UNK
     Route: 065
     Dates: start: 20180830
  22. VALACYCLOVIR HYDROCHLORIDE [Concomitant]
     Active Substance: VALACYCLOVIR HYDROCHLORIDE
     Dosage: UNK
     Route: 065
     Dates: start: 20180813
  23. BACTRIM [Concomitant]
     Active Substance: SULFAMETHOXAZOLE\TRIMETHOPRIM
     Dosage: UNK
     Route: 065
     Dates: start: 20180815

REACTIONS (2)
  - Bone pain [Recovered/Resolved]
  - Pneumonia [Recovered/Resolved]

NARRATIVE: CASE EVENT DATE: 20180830
